FAERS Safety Report 7084272-3 (Version None)
Quarter: 2010Q4

REPORT INFORMATION
  Report Type: 
  Country: None (occurrence: None)
  Receive Date: 20101104
  Receipt Date: 20101101
  Transmission Date: 20110411
  Serious: Yes (Other)
  Sender: FDA-Public Use
  Company Number: US-PFIZER INC-2010139320

PATIENT
  Sex: Female

DRUGS (1)
  1. VERAPAMIL HCL [Suspect]

REACTIONS (1)
  - HYPERSENSITIVITY [None]
